FAERS Safety Report 5718632-7 (Version None)
Quarter: 2008Q2

REPORT INFORMATION
  Report Type: 
  Country: None (occurrence: None)
  Receive Date: 20080425
  Receipt Date: 20080415
  Transmission Date: 20081010
  Serious: Yes (Other)
  Sender: FDA-Public Use
  Company Number: JP-PFIZER INC-2008031321

PATIENT
  Sex: Female

DRUGS (3)
  1. DETRUSITOL LA [Suspect]
     Indication: ENURESIS
     Route: 048
     Dates: start: 20080326, end: 20080331
  2. DETRUSITOL LA [Suspect]
     Indication: HYPERTONIC BLADDER
  3. BUP-4 [Concomitant]
     Route: 048

REACTIONS (2)
  - DIARRHOEA [None]
  - FAECAL INCONTINENCE [None]
